FAERS Safety Report 6220173-8 (Version None)
Quarter: 2009Q2

REPORT INFORMATION
  Report Type: 
  Country: None (occurrence: None)
  Receive Date: 20090609
  Receipt Date: 20090603
  Transmission Date: 20091009
  Serious: Yes (Other)
  Sender: FDA-Public Use
  Company Number: US-JNJCH-2009015515

PATIENT
  Age: 68 Year
  Sex: Male
  Weight: 74.8 kg

DRUGS (2)
  1. ROGAINE [Suspect]
     Indication: ALOPECIA
     Dosage: TEXT:^GOLF BALL^ SIZE TWICE DAILY
     Route: 061
     Dates: start: 20090101, end: 20090603
  2. COUMADIN [Concomitant]
     Indication: ANTICOAGULANT THERAPY
     Dosage: TEXT:TWO TABLETS ONCE A DAY
     Route: 065

REACTIONS (3)
  - DIZZINESS [None]
  - HEADACHE [None]
  - HYPERTENSION [None]
